FAERS Safety Report 16246233 (Version 2)
Quarter: 2019Q2

REPORT INFORMATION
  Report Type: Spontaneous
  Country: US (occurrence: US)
  Receive Date: 20190426
  Receipt Date: 20190513
  Transmission Date: 20190711
  Serious: Yes (Other)
  Sender: FDA-Public Use
  Company Number: US-ASTRAZENECA-2018SF22087

PATIENT
  Sex: Female

DRUGS (13)
  1. NEXIUM [Suspect]
     Active Substance: ESOMEPRAZOLE MAGNESIUM
     Route: 048
     Dates: start: 20110117
  2. PRILOSEC [Suspect]
     Active Substance: OMEPRAZOLE MAGNESIUM
     Route: 048
     Dates: start: 20120701
  3. NEXIUM [Suspect]
     Active Substance: ESOMEPRAZOLE MAGNESIUM
     Route: 048
     Dates: start: 2006, end: 2013
  4. OXYCODONE [Concomitant]
     Active Substance: OXYCODONE
  5. COREG [Concomitant]
     Active Substance: CARVEDILOL
  6. ZETIA [Concomitant]
     Active Substance: EZETIMIBE
  7. LIPITOR [Concomitant]
     Active Substance: ATORVASTATIN CALCIUM
  8. CELEXA [Concomitant]
     Active Substance: CITALOPRAM HYDROBROMIDE
  9. TOPAMAX [Concomitant]
     Active Substance: TOPIRAMATE
  10. XANAX [Concomitant]
     Active Substance: ALPRAZOLAM
  11. DIOVAN [Concomitant]
     Active Substance: VALSARTAN
  12. PRILOSEC [Suspect]
     Active Substance: OMEPRAZOLE MAGNESIUM
     Route: 048
     Dates: start: 2006, end: 2013
  13. PROTONIX [Suspect]
     Active Substance: PANTOPRAZOLE SODIUM
     Route: 065
     Dates: start: 2006, end: 2013

REACTIONS (3)
  - Clostridium difficile infection [Unknown]
  - Acute kidney injury [Unknown]
  - Renal failure [Unknown]
